FAERS Safety Report 4868075-3 (Version None)
Quarter: 2005Q4

REPORT INFORMATION
  Report Type: 
  Country: None (occurrence: None)
  Receive Date: 20051227
  Receipt Date: 20051227
  Transmission Date: 20060501
  Serious: Yes (Death, Hospitalization)
  Sender: FDA-Public Use
  Company Number: None

PATIENT
  Sex: Female
  Weight: 20.4 kg

DRUGS (3)
  1. CYTARABINE [Suspect]
     Indication: ACUTE MYELOID LEUKAEMIA
     Dosage: SEE IMAGE
     Dates: start: 20051118, end: 20051126
  2. CYTARABINE [Suspect]
     Indication: ACUTE MYELOID LEUKAEMIA
     Dosage: SEE IMAGE
     Dates: start: 20051118
  3. ELSPAR [Suspect]
     Dosage: SEE IMAGE
     Dates: start: 20051119, end: 20051126

REACTIONS (18)
  - CARDIAC FAILURE [None]
  - DIALYSIS [None]
  - GENERAL PHYSICAL HEALTH DETERIORATION [None]
  - HEPATIC FAILURE [None]
  - HYPOVOLAEMIA [None]
  - IMMUNOSUPPRESSION [None]
  - LUNG INFILTRATION [None]
  - LUNG NEOPLASM [None]
  - PANCYTOPENIA [None]
  - PULMONARY FIBROSIS [None]
  - PULMONARY HAEMORRHAGE [None]
  - PULMONARY NECROSIS [None]
  - PYREXIA [None]
  - RENAL FAILURE [None]
  - RESPIRATORY FAILURE [None]
  - SEPSIS [None]
  - THERAPY NON-RESPONDER [None]
  - VASODILATATION [None]
